FAERS Safety Report 7487651-5 (Version None)
Quarter: 2011Q2

REPORT INFORMATION
  Report Type: 
  Country: None (occurrence: None)
  Receive Date: 20110518
  Receipt Date: 20091027
  Transmission Date: 20111010
  Serious: Yes (Other)
  Sender: FDA-Public Use
  Company Number: US-BAYER-200937708NA

PATIENT
  Age: 43 Year
  Sex: Male
  Weight: 118 kg

DRUGS (12)
  1. DOBUTREX [Concomitant]
     Dosage: 250 ML, UNK
     Route: 042
     Dates: start: 20060613, end: 20060613
  2. AMIODARONE HCL [Concomitant]
     Dosage: 450 MG, UNK
     Route: 042
     Dates: start: 20060613, end: 20060618
  3. CEFUROXIME [Concomitant]
     Dosage: 1500 MG, UNK
     Route: 042
     Dates: start: 20060613
  4. TRASYLOL [Suspect]
     Indication: AORTIC DISSECTION
     Dosage: 200 ML, ONCE, PUMP PRIME
     Route: 042
     Dates: start: 20060613, end: 20060613
  5. BACITRACIN [Concomitant]
     Dosage: 50000 U, IRRIGATION
     Dates: start: 20060613, end: 20060613
  6. TRASYLOL [Suspect]
     Indication: AORTIC SURGERY
     Dosage: 50 ML PER HOUR INFUSION
     Route: 042
     Dates: start: 20060613, end: 20060613
  7. NIPRIDE [Concomitant]
     Dosage: 50 MG, UNK
     Route: 042
     Dates: start: 20060613, end: 20060615
  8. LEVOPHED [Concomitant]
     Dosage: 4 MG, UNK
     Route: 042
     Dates: start: 20060613, end: 20060613
  9. KANTREX [Concomitant]
     Dosage: 1 G, IRRIGATION
     Dates: start: 20060613, end: 20060613
  10. VANCOMYCIN [Concomitant]
     Dosage: 1000 MG, UNK
     Route: 042
     Dates: start: 20060613
  11. PROTAMINE SULFATE [Concomitant]
     Dosage: 250 MCG
     Route: 042
     Dates: start: 20060613, end: 20060613
  12. EPINEPHRINE [Concomitant]
     Dosage: 8 MG, UNK
     Route: 042
     Dates: start: 20060613, end: 20060613

REACTIONS (5)
  - INJURY [None]
  - UNEVALUABLE EVENT [None]
  - PAIN [None]
  - RENAL FAILURE ACUTE [None]
  - RENAL FAILURE [None]
